FAERS Safety Report 24638611 (Version 1)
Quarter: 2024Q4

REPORT INFORMATION
  Report Type: Spontaneous
  Country: CZ (occurrence: CZ)
  Receive Date: 20241119
  Receipt Date: 20241119
  Transmission Date: 20250115
  Serious: Yes (Other)
  Sender: AEGERION
  Company Number: CZ-AMRYT PHARMACEUTICALS DAC-AEGR007559

PATIENT

DRUGS (2)
  1. LOMITAPIDE MESYLATE [Suspect]
     Active Substance: LOMITAPIDE MESYLATE
     Indication: Product used for unknown indication
     Dosage: UNK
  2. LOMITAPIDE MESYLATE [Suspect]
     Active Substance: LOMITAPIDE MESYLATE
     Dosage: 5 MILLIGRAM, TWICE PER WEEK

REACTIONS (1)
  - Liver function test increased [Unknown]
